FAERS Safety Report 25164198 (Version 1)
Quarter: 2025Q2

REPORT INFORMATION
  Report Type: Other
  Country: DE (occurrence: DE)
  Receive Date: 20250405
  Receipt Date: 20250405
  Transmission Date: 20250717
  Serious: Yes (Other)
  Sender: Kanchan Healthcare
  Company Number: DE-Kanchan Healthcare INC-2174350

PATIENT
  Age: 48 Year
  Sex: Female

DRUGS (5)
  1. ETHAMBUTOL HYDROCHLORIDE [Suspect]
     Active Substance: ETHAMBUTOL HYDROCHLORIDE
     Indication: Tuberculosis
  2. ISONIAZID [Suspect]
     Active Substance: ISONIAZID
  3. HYDROXYCHLOROQUINE SULFATE [Concomitant]
     Active Substance: HYDROXYCHLOROQUINE SULFATE
  4. PYRAZINAMIDE [Suspect]
     Active Substance: PYRAZINAMIDE
  5. RIFAMPIN [Suspect]
     Active Substance: RIFAMPIN

REACTIONS (2)
  - Rhabdomyolysis [Recovered/Resolved]
  - Systemic lupus erythematosus [Recovered/Resolved]
